FAERS Safety Report 8920850 (Version 1)
Quarter: 2012Q4

REPORT INFORMATION
  Report Type: Report from Study
  Country: NL (occurrence: NL)
  Receive Date: 20121121
  Receipt Date: 20121121
  Transmission Date: 20130627
  Serious: Yes (Other)
  Sender: FDA-Public Use
  Company Number: NL-B.I. PHARMACEUTICALS,INC./RIDGEFIELD-2012-NL-00490NL

PATIENT
  Age: 69 Year
  Sex: Male

DRUGS (2)
  1. PERSANTIN RETARD 150 [Suspect]
     Indication: TRANSIENT ISCHAEMIC ATTACK
     Dosage: 400 mg
     Dates: start: 20100421, end: 20120701
  2. ASCAL BRISPER CARDIO-NEURO [Concomitant]
     Dosage: 100 mg
     Dates: start: 20100421

REACTIONS (1)
  - Myasthenia gravis [Recovered/Resolved]
